FAERS Safety Report 20649576 (Version 1)
Quarter: 2022Q1

REPORT INFORMATION
  Report Type: Spontaneous
  Country: US (occurrence: None)
  Receive Date: 20220329
  Receipt Date: 20220329
  Transmission Date: 20220424
  Serious: No
  Sender: FDA-Public Use
  Company Number: None

PATIENT
  Sex: Female

DRUGS (1)
  1. HUMIRA [Suspect]
     Active Substance: ADALIMUMAB
     Indication: Rheumatoid arthritis
     Dosage: OTHER FREQUENCY : EVERY 14 DAYS;?
     Route: 030
     Dates: start: 202010

REACTIONS (5)
  - Drug specific antibody present [None]
  - Joint swelling [None]
  - Injection site swelling [None]
  - Autoimmune disorder [None]
  - Drug ineffective [None]
